FAERS Safety Report 14340128 (Version 1)
Quarter: 2017Q4

REPORT INFORMATION
  Report Type: Report from Study
  Country: US (occurrence: US)
  Receive Date: 20171231
  Receipt Date: 20171231
  Transmission Date: 20180321
  Serious: Yes (Other)
  Sender: FDA-Public Use
  Company Number: US-ROCHE-2045277

PATIENT
  Sex: Female

DRUGS (1)
  1. ESBRIET [Suspect]
     Active Substance: PIRFENIDONE
     Indication: IDIOPATHIC PULMONARY FIBROSIS
     Dosage: 267MG CAPSULE (3 CAPSULES) EVERY 5 TO 6 HOURS   ?9 CAPSULES A DAY
     Route: 048
     Dates: start: 201310

REACTIONS (3)
  - Hot flush [Not Recovered/Not Resolved]
  - Dry skin [Not Recovered/Not Resolved]
  - Pulmonary hypertension [Not Recovered/Not Resolved]
